FAERS Safety Report 15740334 (Version 1)
Quarter: 2018Q4

REPORT INFORMATION
  Report Type: Spontaneous
  Country: US (occurrence: US)
  Receive Date: 20181219
  Receipt Date: 20181219
  Transmission Date: 20190205
  Serious: Yes (Hospitalization)
  Sender: FDA-Public Use
  Company Number: None

PATIENT
  Age: 19 Year
  Sex: Female

DRUGS (21)
  1. ESTARYLLA 0.25-35 [Concomitant]
  2. FLUTICASONE 50MCG [Concomitant]
     Active Substance: FLUTICASONE
  3. PRAVASTATIN. [Concomitant]
     Active Substance: PRAVASTATIN
  4. SPIRONOLACT 25MG [Concomitant]
  5. CARTIA 180/24HR [Concomitant]
  6. CHLOROTHIAZ 250MG [Concomitant]
  7. FEROSUL 325MG [Concomitant]
  8. LISINOPRIL. [Concomitant]
     Active Substance: LISINOPRIL
  9. PREDNISONE 5MG [Concomitant]
     Active Substance: PREDNISONE
  10. BIOTIN 300MCG [Concomitant]
  11. FUROSEMIDE 20MG [Concomitant]
     Active Substance: FUROSEMIDE
  12. VITAMIN D 1000UNIT [Concomitant]
  13. ZOLPIDEM [Concomitant]
     Active Substance: ZOLPIDEM\ZOLPIDEM TARTRATE
  14. ASPIRIN 81MG [Concomitant]
     Active Substance: ASPIRIN
  15. MYCOPHENOLATE 250MG [Concomitant]
     Active Substance: MYCOPHENOLIC ACID
  16. OMEPRAOLE 20MG [Concomitant]
  17. MULTIVITAMIN [Concomitant]
     Active Substance: VITAMINS
  18. RAPAMUNE [Suspect]
     Active Substance: SIROLIMUS
     Indication: HEART TRANSPLANT
     Route: 048
     Dates: start: 20161205
  19. NASAL SPRAY 0.05% [Concomitant]
  20. POT CL 20MEQ [Concomitant]
  21. VITAMIN B3 1000UNIT [Concomitant]

REACTIONS (1)
  - Dehydration [None]

NARRATIVE: CASE EVENT DATE: 20181201
